FAERS Safety Report 10006203 (Version 1)
Quarter: 2014Q1

REPORT INFORMATION
  Report Type: Report from Study
  Country: US (occurrence: US)
  Receive Date: 20140313
  Receipt Date: 20140313
  Transmission Date: 20141002
  Serious: Yes (Other)
  Sender: FDA-Public Use
  Company Number: US-ASTELLAS-2014US002488

PATIENT
  Age: 85 Year
  Sex: Male

DRUGS (2)
  1. ERLOTINIB TABLET [Suspect]
     Indication: LUNG NEOPLASM MALIGNANT
     Dosage: 150 MG, 3 DAYS ON AND 1 DAY OFF
     Route: 048
  2. ASPIRIN [Concomitant]
     Indication: PRODUCT USED FOR UNKNOWN INDICATION
     Dosage: UNK  (4 IN 1 WK)
     Route: 048

REACTIONS (6)
  - Inappropriate schedule of drug administration [Unknown]
  - Malignant neoplasm progression [Unknown]
  - Epistaxis [Unknown]
  - Haemorrhagic diathesis [Unknown]
  - Rash [Unknown]
  - Hypertension [Unknown]
